FAERS Safety Report 10923979 (Version 1)
Quarter: 2015Q1

REPORT INFORMATION
  Report Type: Spontaneous
  Country: US (occurrence: None)
  Receive Date: 20150316
  Receipt Date: 20150316
  Transmission Date: 20150721
  Serious: Yes (Death)
  Sender: FDA-Public Use
  Company Number: None

PATIENT
  Age: 7 Year
  Sex: Male

DRUGS (11)
  1. TOBRAMYCIN. [Suspect]
     Active Substance: TOBRAMYCIN
     Indication: CYSTIC FIBROSIS
     Dosage: NEBULIZER
     Dates: start: 20140610
  2. LEVOCARNITINE. [Concomitant]
     Active Substance: LEVOCARNITINE
  3. B-D #9575 SYR/NDL [Concomitant]
  4. FELBAMATE. [Concomitant]
     Active Substance: FELBAMATE
  5. BUDESONIDE. [Concomitant]
     Active Substance: BUDESONIDE
  6. BACLOFEN. [Concomitant]
     Active Substance: BACLOFEN
  7. VALPROIC ACID. [Concomitant]
     Active Substance: VALPROIC ACID
  8. AZITHROMYCIN [Concomitant]
     Active Substance: AZITHROMYCIN ANHYDROUS
  9. DIAZEPAM. [Concomitant]
     Active Substance: DIAZEPAM
  10. ALBUTEROL. [Concomitant]
     Active Substance: ALBUTEROL
  11. CUVPOSA [Concomitant]
     Active Substance: GLYCOPYRROLATE

REACTIONS (1)
  - Death [None]

NARRATIVE: CASE EVENT DATE: 20150207
